FAERS Safety Report 4392604-X (Version None)
Quarter: 2004Q3

REPORT INFORMATION
  Report Type: 
  Country: None (occurrence: None)
  Receive Date: 20040702
  Receipt Date: 20040623
  Transmission Date: 20050211
  Serious: Yes (Hospitalization)
  Sender: FDA-Public Use
  Company Number: HQWYE647924JUN04

PATIENT
  Age: 36 Year
  Sex: Female

DRUGS (3)
  1. EFFEXOR [Suspect]
     Indication: INJURY
     Dosage: 150 MG 1X PER 1 DAY ORAL
     Route: 048
     Dates: start: 20040516
  2. RITALIN [Suspect]
     Indication: LEARNING DISABILITY
     Dates: start: 20040501, end: 20040601
  3. ATIVAN [Concomitant]

REACTIONS (6)
  - ENURESIS [None]
  - FEELING ABNORMAL [None]
  - FORMICATION [None]
  - GENERAL PHYSICAL HEALTH DETERIORATION [None]
  - INSOMNIA [None]
  - WEIGHT DECREASED [None]
